FAERS Safety Report 16398019 (Version 1)
Quarter: 2019Q2

REPORT INFORMATION
  Report Type: Spontaneous
  Country: US (occurrence: US)
  Receive Date: 20190606
  Receipt Date: 20190606
  Transmission Date: 20190711
  Serious: No
  Sender: FDA-Public Use
  Company Number: US-JNJFOC-20190539269

PATIENT
  Age: 36 Month
  Sex: Male
  Weight: 14.97 kg

DRUGS (1)
  1. CHILDRENS TYLENOL [Suspect]
     Active Substance: ACETAMINOPHEN
     Indication: PRODUCT USED FOR UNKNOWN INDICATION
     Dosage: 5 ML AT 0600 HOURS AND THEN ANOTHER DOSE 0915 HOURS
     Route: 065

REACTIONS (1)
  - Extra dose administered [Unknown]
